FAERS Safety Report 20765766 (Version 1)
Quarter: 2022Q2

REPORT INFORMATION
  Report Type: Spontaneous
  Country: US (occurrence: US)
  Receive Date: 20220428
  Receipt Date: 20220428
  Transmission Date: 20220720
  Serious: No
  Sender: FDA-Public Use
  Company Number: US-PFIZER INC-202200327821

PATIENT
  Age: 53 Year
  Sex: Female

DRUGS (16)
  1. INLYTA [Suspect]
     Active Substance: AXITINIB
     Dosage: 5 MG, EVERY 12 HOUR
     Route: 048
     Dates: start: 20220203
  2. BIOTIN [Concomitant]
     Active Substance: BIOTIN
     Dosage: UNK
  3. CALCIUM CARBONATE [Concomitant]
     Active Substance: CALCIUM CARBONATE
     Dosage: UNK
  4. ELIQUIS [Concomitant]
     Active Substance: APIXABAN
     Dosage: UNK
  5. IMITREX [Concomitant]
     Active Substance: SUMATRIPTAN SUCCINATE
     Dosage: UNK
  6. KEYTRUDA [Concomitant]
     Active Substance: PEMBROLIZUMAB
     Dosage: UNK
  7. LORATADINE [Concomitant]
     Active Substance: LORATADINE
     Dosage: UNK
  8. ONDANSETRON [Concomitant]
     Active Substance: ONDANSETRON
     Dosage: UNK
  9. OXYCODONE [Concomitant]
     Active Substance: OXYCODONE
     Dosage: UNK
  10. PROBIOTICS NOS [Concomitant]
     Active Substance: PROBIOTICS NOS
     Dosage: UNK
  11. VITAMIN D3 [Concomitant]
     Active Substance: CHOLECALCIFEROL
     Dosage: UNK
  12. WELLBUTRIN [Concomitant]
     Active Substance: BUPROPION HYDROCHLORIDE
     Dosage: UNK
  13. ZINC [Concomitant]
     Active Substance: ZINC
     Dosage: UNK
  14. DRONABINOL [Concomitant]
     Active Substance: DRONABINOL
     Dosage: UNK
  15. LISINOPRIL [Concomitant]
     Active Substance: LISINOPRIL
     Dosage: UNK
  16. XANAX [Concomitant]
     Active Substance: ALPRAZOLAM

REACTIONS (1)
  - Nausea [Unknown]

NARRATIVE: CASE EVENT DATE: 20220201
